FAERS Safety Report 5124270-X (Version None)
Quarter: 2006Q3

REPORT INFORMATION
  Report Type: 
  Country: None (occurrence: None)
  Receive Date: 20060816
  Receipt Date: 20060426
  Transmission Date: 20061208
  Serious: No
  Sender: FDA-Public Use
  Company Number: US200604004200

PATIENT
  Age: 61 Year
  Sex: Male

DRUGS (3)
  1. CIALIS [Suspect]
     Indication: ERECTILE DYSFUNCTION
     Dosage: 20 MG
     Dates: start: 20060301
  2. CRESTOR [Concomitant]
  3. BENICAR /USA/ (OLMESARTAN MEDOXOMIL) [Concomitant]

REACTIONS (5)
  - DYSPEPSIA [None]
  - GASTROINTESTINAL DISORDER [None]
  - NAUSEA [None]
  - RETCHING [None]
  - VOMITING [None]
